FAERS Safety Report 5604098-4 (Version None)
Quarter: 2008Q1

REPORT INFORMATION
  Report Type: 
  Country: None (occurrence: None)
  Receive Date: 20080128
  Receipt Date: 20080116
  Transmission Date: 20080703
  Serious: Yes (Hospitalization)
  Sender: FDA-Public Use
  Company Number: US-AVENTIS-200718510US

PATIENT
  Sex: Female
  Weight: 69 kg

DRUGS (14)
  1. LOVENOX [Suspect]
     Dosage: DOSE: UNK
     Dates: start: 20071026, end: 20071108
  2. LOVENOX [Suspect]
     Dates: start: 20071109, end: 20071113
  3. COZAAR [Concomitant]
     Indication: HYPERTENSION
  4. TIAZAC                             /00489702/ [Concomitant]
     Dosage: DOSE: UNK
  5. DIAZIDE                            /00413701/ [Concomitant]
     Dosage: DOSE: UNK
  6. GLIPIZIDE [Concomitant]
     Dosage: DOSE: UNK
  7. ACTONEL [Concomitant]
     Dosage: DOSE: UNK
  8. PREVACID [Concomitant]
     Dosage: DOSE: UNK
  9. MULTI-VITAMINS [Concomitant]
     Dosage: DOSE: UNK
  10. COUMADIN [Concomitant]
     Dosage: DOSE: UNK
     Dates: end: 20071026
  11. DILTIAZEM HCL [Concomitant]
     Indication: HYPERTENSION
  12. TRIAMTERENE [Concomitant]
     Dosage: DOSE: 375/25
  13. XALATAN [Concomitant]
     Dosage: DOSE: 1 DROP EACH EYE
     Route: 047
  14. PRILOSEC                           /00661201/ [Concomitant]

REACTIONS (6)
  - HAEMATOMA [None]
  - INJECTION SITE HAEMATOMA [None]
  - OEDEMA PERIPHERAL [None]
  - PAIN IN EXTREMITY [None]
  - SKIN DISCOLOURATION [None]
  - WRONG TECHNIQUE IN DRUG USAGE PROCESS [None]
